FAERS Safety Report 21064200 (Version 2)
Quarter: 2022Q3

REPORT INFORMATION
  Report Type: Spontaneous
  Country: CO (occurrence: CO)
  Receive Date: 20220711
  Receipt Date: 20220815
  Transmission Date: 20221026
  Serious: No
  Sender: FDA-Public Use
  Company Number: CO-PFIZER INC-PV202200006700

PATIENT

DRUGS (1)
  1. GENOTROPIN [Suspect]
     Active Substance: SOMATROPIN
     Dosage: UNK
     Route: 058
     Dates: start: 202206

REACTIONS (3)
  - Contusion [Not Recovered/Not Resolved]
  - Device leakage [Unknown]
  - Accidental exposure to product [Not Recovered/Not Resolved]
